FAERS Safety Report 6664620-6 (Version None)
Quarter: 2010Q1

REPORT INFORMATION
  Report Type: 
  Country: None (occurrence: None)
  Receive Date: 20100330
  Receipt Date: 20091123
  Transmission Date: 20100710
  Serious: Yes (Hospitalization)
  Sender: FDA-Public Use
  Company Number: 6056217

PATIENT
  Age: 85 Year
  Sex: Male

DRUGS (3)
  1. EUTIROX (50 MICROGRAM) (LEVOTHYROXINE SODIUM) [Suspect]
     Indication: HYPOTHYROIDISM
     Dosage: (75 MCG)
     Route: 048
  2. DIGOXIN [Suspect]
     Indication: ATRIAL FIBRILLATION
     Dosage: (0.75 MG)
     Route: 048
     Dates: end: 20090129
  3. ENALAPRIL MALEATE [Concomitant]

REACTIONS (7)
  - ATRIAL FIBRILLATION [None]
  - ATRIAL FLUTTER [None]
  - BLOOD PH DECREASED [None]
  - BUNDLE BRANCH BLOCK LEFT [None]
  - DRUG INTERACTION [None]
  - DRUG TOXICITY [None]
  - PNEUMONIA [None]
